FAERS Safety Report 22609697 (Version 1)
Quarter: 2023Q2

REPORT INFORMATION
  Report Type: Spontaneous
  Country: NL (occurrence: NL)
  Receive Date: 20230616
  Receipt Date: 20230616
  Transmission Date: 20230721
  Serious: Yes (Life-Threatening)
  Sender: FDA-Public Use
  Company Number: None

PATIENT
  Sex: Female
  Weight: 53 kg

DRUGS (1)
  1. CLINDAMYCIN [Suspect]
     Active Substance: CLINDAMYCIN
     Indication: Pneumonia aspiration
     Dosage: 3 DOSAGE FORMS DAILY; 3X/DAY  , BRAND NAME NOT SPECIFIED
     Dates: start: 20230427, end: 20230430

REACTIONS (3)
  - Erythema multiforme [Recovered/Resolved]
  - Swelling of eyelid [Unknown]
  - Lip swelling [Unknown]
